FAERS Safety Report 8572642-3 (Version None)
Quarter: 2012Q3

REPORT INFORMATION
  Report Type: 
  Country: None (occurrence: None)
  Receive Date: 20120806
  Receipt Date: 20120727
  Transmission Date: 20120928
  Serious: Yes (Other)
  Sender: FDA-Public Use
  Company Number: SE-ASTRAZENECA-2012SE53532

PATIENT
  Age: 93 Year
  Sex: Female

DRUGS (13)
  1. METOPROLOL SUCCINATE [Suspect]
     Indication: HYPERTENSION
     Route: 048
  2. LOSARTAN POTASSIUM [Suspect]
     Indication: HYPERTENSION
     Route: 065
  3. METOPROLOL SUCCINATE [Suspect]
     Route: 048
  4. LOSARTAN POTASSIUM [Suspect]
     Indication: CARDIAC FAILURE
     Route: 065
  5. LOSARTAN POTASSIUM [Suspect]
  6. METOPROLOL SUCCINATE [Suspect]
     Dosage: 100 MG + 50 MG
     Route: 048
  7. METOPROLOL SUCCINATE [Suspect]
     Indication: CARDIAC FAILURE
     Route: 048
  8. METOPROLOL SUCCINATE [Suspect]
     Route: 048
  9. ASPIRIN [Concomitant]
  10. METOPROLOL SUCCINATE [Suspect]
     Dosage: 100 MG + 50 MG
     Route: 048
  11. LASIX [Concomitant]
  12. LOSARTAN POTASSIUM [Suspect]
  13. ASPIRIN [Concomitant]

REACTIONS (6)
  - GASTRIC ULCER HAEMORRHAGE [None]
  - OFF LABEL USE [None]
  - CONSTIPATION [None]
  - HEADACHE [None]
  - ANAEMIA [None]
  - FATIGUE [None]
